FAERS Safety Report 13782511 (Version 1)
Quarter: 2017Q3

REPORT INFORMATION
  Report Type: Spontaneous
  Country: SK (occurrence: SK)
  Receive Date: 20170724
  Receipt Date: 20170724
  Transmission Date: 20171127
  Serious: Yes (Hospitalization)
  Sender: FDA-Public Use
  Company Number: SK-TEVA-788639ISR

PATIENT
  Age: 91 Year
  Sex: Female
  Weight: 66 kg

DRUGS (4)
  1. CLOPIDOGREL [Suspect]
     Active Substance: CLOPIDOGREL BISULFATE
     Indication: HYPERTENSION
     Dosage: 75 MILLIGRAM DAILY; 1-0-0
     Route: 048
     Dates: start: 20170212, end: 20170317
  2. CONCOR [Suspect]
     Active Substance: BISOPROLOL FUMARATE
     Indication: HYPERTENSION
     Dosage: 5 MILLIGRAM DAILY; 1-0-0
     Route: 048
     Dates: start: 20170212, end: 20170317
  3. KALDYUM [Suspect]
     Active Substance: POTASSIUM CHLORIDE
     Dosage: 1-0-0
     Route: 048
     Dates: start: 20170212, end: 20170317
  4. FURON [Suspect]
     Active Substance: FUROSEMIDE
     Dosage: 20 MILLIGRAM DAILY; 1-0-0
     Route: 048
     Dates: start: 20170212, end: 20170317

REACTIONS (2)
  - Toxic skin eruption [Recovered/Resolved]
  - Rash [Recovered/Resolved]

NARRATIVE: CASE EVENT DATE: 20170312
